FAERS Safety Report 8031571-4 (Version None)
Quarter: 2012Q1

REPORT INFORMATION
  Report Type: 
  Country: None (occurrence: None)
  Receive Date: 20120109
  Receipt Date: 20120102
  Transmission Date: 20120608
  Serious: Yes (Death)
  Sender: FDA-Public Use
  Company Number: US-BAYER-2012-001934

PATIENT
  Age: 45 Year
  Sex: Female

DRUGS (10)
  1. DIPHENHYDRAMINE HCL [Suspect]
     Route: 048
  2. PRAMIPEXOLE DIHYCHLLORIDE [Suspect]
     Route: 048
  3. ACETAMINOPHEN AND HYDROCODONE BITARTRATE [Suspect]
     Route: 048
  4. LAMOTRIGINE [Suspect]
     Route: 048
  5. PARACETAMOL + DIPHENHYDRAMINE [Suspect]
     Route: 048
  6. TOPIRAMATE [Suspect]
     Route: 048
  7. PREGABALIN [Suspect]
     Route: 048
  8. CLONAZEPAM [Suspect]
     Route: 048
  9. FLUOXETINE [Suspect]
     Route: 048
  10. PARACETAMOL W/PROPOXYPHENE [Suspect]
     Route: 048

REACTIONS (1)
  - TOXICITY TO VARIOUS AGENTS [None]
